FAERS Safety Report 13835342 (Version 3)
Quarter: 2018Q1

REPORT INFORMATION
  Report Type: Spontaneous
  Country: US (occurrence: US)
  Receive Date: 20170804
  Receipt Date: 20180111
  Transmission Date: 20180508
  Serious: No
  Sender: FDA-Public Use
  Company Number: US-PFIZER INC-2017195305

PATIENT
  Age: 72 Year
  Sex: Female
  Weight: 62.6 kg

DRUGS (5)
  1. XELJANZ XR [Suspect]
     Active Substance: TOFACITINIB CITRATE
     Indication: RHEUMATOID ARTHRITIS
     Dosage: 11 MG, 1X/DAY
     Route: 048
     Dates: start: 201705
  2. XELJANZ XR [Suspect]
     Active Substance: TOFACITINIB CITRATE
     Indication: PAIN
     Dosage: 11 MG, 1X/DAY
     Route: 048
     Dates: start: 201705
  3. XELJANZ XR [Suspect]
     Active Substance: TOFACITINIB CITRATE
     Indication: SWELLING
  4. LEVOTHYROXINE. [Concomitant]
     Active Substance: LEVOTHYROXINE
     Indication: THYROID DISORDER
     Dosage: 25 UG, 1X/DAY
     Route: 048
     Dates: start: 201704
  5. FOLIC ACID. [Concomitant]
     Active Substance: FOLIC ACID
     Indication: DRUG THERAPY
     Dosage: 1 MG, DAILY (PER DAY)
     Route: 048
     Dates: start: 201704

REACTIONS (5)
  - Insomnia [Unknown]
  - Weight increased [Unknown]
  - Drug ineffective [Not Recovered/Not Resolved]
  - Pollakiuria [Unknown]
  - Joint effusion [Not Recovered/Not Resolved]
